FAERS Safety Report 7597881-X (Version None)
Quarter: 2011Q3

REPORT INFORMATION
  Report Type: 
  Country: None (occurrence: None)
  Receive Date: 20110708
  Receipt Date: 20110629
  Transmission Date: 20111222
  Serious: Yes (Hospitalization)
  Sender: FDA-Public Use
  Company Number: US-ASTRAZENECA-2011SE39462

PATIENT
  Age: 23 Year
  Sex: Female

DRUGS (1)
  1. SEROQUEL [Suspect]
     Route: 048

REACTIONS (5)
  - HOSPITALISATION [None]
  - BIPOLAR I DISORDER [None]
  - DRUG DOSE OMISSION [None]
  - BIPOLAR DISORDER [None]
  - PSYCHOTIC DISORDER [None]
